FAERS Safety Report 11483884 (Version 1)
Quarter: 2015Q3

REPORT INFORMATION
  Report Type: Spontaneous
  Country: US (occurrence: None)
  Receive Date: 20150909
  Receipt Date: 20150909
  Transmission Date: 20151125
  Serious: Yes (Other)
  Sender: FDA-Public Use
  Company Number: None

PATIENT
  Age: 69 Year
  Sex: Male

DRUGS (2)
  1. INLYTA [Suspect]
     Active Substance: AXITINIB
     Indication: MALIGNANT GENITOURINARY TRACT NEOPLASM
     Dosage: 1 TABLET QAM AND 2 TABLETS QPM
     Route: 048
  2. INLYTA [Suspect]
     Active Substance: AXITINIB
     Indication: RENAL CANCER
     Dosage: 1 TABLET QAM AND 2 TABLETS QPM
     Route: 048

REACTIONS (4)
  - Decreased appetite [None]
  - Diarrhoea [None]
  - Nasal congestion [None]
  - Aphonia [None]

NARRATIVE: CASE EVENT DATE: 20150902
